FAERS Safety Report 7236066-3 (Version None)
Quarter: 2011Q1

REPORT INFORMATION
  Report Type: 
  Country: None (occurrence: None)
  Receive Date: 20110111
  Receipt Date: 20101230
  Transmission Date: 20110831
  Serious: Yes (Hospitalization, Other)
  Sender: FDA-Public Use
  Company Number: 1000018075

PATIENT
  Age: 47 Year
  Sex: Female
  Weight: 80 kg

DRUGS (4)
  1. CHLORPROTHIXENE (CHLORPROTHIXENE) [Suspect]
     Dosage: 1500 MG, ONCE, ORAL
     Route: 048
     Dates: start: 20101230, end: 20101230
  2. ALCOHOL (ETHANOL) [Suspect]
     Dosage: ONCE, ORAL
     Route: 048
     Dates: start: 20101230, end: 20101230
  3. ESCITALOPRAM OXALATE [Suspect]
     Dosage: 2500 MG, ONCE, ORAL
     Route: 048
     Dates: start: 20101230, end: 20101230
  4. SEROQUEL [Suspect]
     Dosage: 5000 MG, ONCE, ORAL
     Route: 048
     Dates: start: 20101230, end: 20101230

REACTIONS (5)
  - VOMITING [None]
  - ELECTROCARDIOGRAM QT PROLONGED [None]
  - ALCOHOL POISONING [None]
  - MULTIPLE DRUG OVERDOSE INTENTIONAL [None]
  - SUICIDE ATTEMPT [None]
